FAERS Safety Report 11550206 (Version 1)
Quarter: 2015Q3

REPORT INFORMATION
  Report Type: Report from Study
  Country: US (occurrence: US)
  Receive Date: 20150924
  Receipt Date: 20150924
  Transmission Date: 20151125
  Serious: Yes (Hospitalization)
  Sender: FDA-Public Use
  Company Number: US-ACTELION-A-NJ2015-124209

PATIENT
  Age: 50 Year
  Sex: Male

DRUGS (3)
  1. AMPHOTERICIN B. [Concomitant]
     Active Substance: AMPHOTERICIN B
     Dosage: 50 MG, QD
     Route: 055
     Dates: start: 20150903
  2. MACITENTAN [Suspect]
     Active Substance: MACITENTAN
     Indication: PULMONARY ARTERIAL HYPERTENSION
     Dosage: 10 MG, QD
     Route: 048
     Dates: start: 20150422, end: 20150728
  3. COLISTIMETHATE [Concomitant]
     Active Substance: COLISTIMETHATE SODIUM
     Dosage: 150 MG, Q12HRS
     Route: 055
     Dates: start: 20150903

REACTIONS (1)
  - Lung transplant [Unknown]

NARRATIVE: CASE EVENT DATE: 20150728
